FAERS Safety Report 5301395-7 (Version None)
Quarter: 2007Q2

REPORT INFORMATION
  Report Type: 
  Country: None (occurrence: None)
  Receive Date: 20070418
  Receipt Date: 20070406
  Transmission Date: 20071010
  Serious: Yes (Death, Other)
  Sender: FDA-Public Use
  Company Number: CN-PFIZER INC-2007027628

PATIENT
  Age: 70 Year
  Sex: Male

DRUGS (2)
  1. SOLU-MEDROL [Suspect]
     Indication: SCLERODERMA
     Route: 042
     Dates: start: 20070301, end: 20070301
  2. SOLU-MEDROL [Suspect]
     Indication: PULMONARY FIBROSIS

REACTIONS (3)
  - AGITATION [None]
  - DEPRESSED LEVEL OF CONSCIOUSNESS [None]
  - DISEASE PROGRESSION [None]
